FAERS Safety Report 5488765-1 (Version None)
Quarter: 2007Q4

REPORT INFORMATION
  Report Type: 
  Country: None (occurrence: None)
  Receive Date: 20071017
  Receipt Date: 20071005
  Transmission Date: 20080405
  Serious: Yes (Other)
  Sender: FDA-Public Use
  Company Number: ES-PFIZER INC-2007085171

PATIENT
  Age: 52 Year
  Sex: Male

DRUGS (2)
  1. AREMIS [Suspect]
     Route: 048
  2. TIORFAN [Suspect]
     Indication: GASTROENTERITIS
     Route: 048

REACTIONS (2)
  - HEPATITIS [None]
  - HEPATOCELLULAR DAMAGE [None]
